FAERS Safety Report 9450228 (Version 1)
Quarter: 2013Q3

REPORT INFORMATION
  Report Type: Report from Study
  Country: BE (occurrence: BE)
  Receive Date: 20130809
  Receipt Date: 20130809
  Transmission Date: 20140515
  Serious: Yes (Hospitalization)
  Sender: FDA-Public Use
  Company Number: BE-AMGEN-BELCT2011065946

PATIENT
  Age: 60 Year
  Sex: Male
  Weight: 90 kg

DRUGS (10)
  1. ETANERCEPT [Suspect]
     Indication: RHEUMATOID ARTHRITIS
     Dosage: 50 MG, WEEKLY
     Route: 058
     Dates: start: 20100316
  2. METHOTREXATE [Concomitant]
     Indication: RHEUMATOID ARTHRITIS
     Dosage: 15 MG, WEEKLY
     Route: 048
  3. FOLAVIT [Concomitant]
     Dosage: 4 MG, 1X/DAY
     Route: 048
  4. FOLAVIT [Concomitant]
     Dosage: 8 MG, WEEKLY
     Route: 048
  5. GLUCOPHAGE [Concomitant]
     Dosage: 850 MG, 3X/DAY
     Route: 048
  6. ACTOS [Concomitant]
     Dosage: 15 MG, 1X/DAY
     Route: 048
  7. CRESTOR [Concomitant]
     Dosage: 20 MG, 1X/DAY
     Route: 048
  8. BISOPROLOL [Concomitant]
     Dosage: 5 MG, 1X/DAY
     Route: 048
  9. OMEPRAZOLE [Concomitant]
     Dosage: 10 MG, 1X/DAY
     Route: 048
  10. FERROGRADUMET [Concomitant]
     Dosage: UNK

REACTIONS (1)
  - Pneumonitis [Recovered/Resolved]
